FAERS Safety Report 4594798-X (Version None)
Quarter: 2005Q1

REPORT INFORMATION
  Report Type: 
  Country: None (occurrence: None)
  Receive Date: 20050223
  Receipt Date: 20050208
  Transmission Date: 20050727
  Serious: No
  Sender: FDA-Public Use
  Company Number: 2005GB00276

PATIENT
  Age: 76 Year
  Sex: Male
  Weight: 93 kg

DRUGS (5)
  1. QUETIAPINE FUMARATE [Suspect]
     Indication: AGITATION
     Dosage: 25 MG QD PO
     Route: 048
     Dates: start: 20050114, end: 20050118
  2. AMIODARONE [Concomitant]
  3. BISOPROLOL FUMARATE [Concomitant]
  4. PERINDOPRIL [Concomitant]
  5. TEGRETOL [Concomitant]

REACTIONS (3)
  - ATRIOVENTRICULAR BLOCK COMPLETE [None]
  - BRADYCARDIA [None]
  - SINUS ARREST [None]
